FAERS Safety Report 7889466-2 (Version None)
Quarter: 2011Q4

REPORT INFORMATION
  Report Type: 
  Country: None (occurrence: None)
  Receive Date: 20111103
  Receipt Date: 20111027
  Transmission Date: 20120403
  Serious: Yes (Other)
  Sender: FDA-Public Use
  Company Number: PHHY2011FI95616

PATIENT
  Age: 60 Year
  Sex: Female

DRUGS (6)
  1. CALCIUM [Concomitant]
     Dosage: 500 MG, UNK
  2. VITAMIN D [Concomitant]
     Dosage: 400 IU, QD
  3. HUMIRA [Concomitant]
     Dosage: 40 MG, ONCE MONTH
  4. PREDNISOLONE [Suspect]
     Dosage: 5 MG, QD
  5. NALTREXONE HYDROCHLORIDE [Concomitant]
     Dosage: 15 MG, QW
  6. RISEDRONATE SODIUM [Suspect]
     Indication: OSTEOPENIA
     Dosage: 35 MG,

REACTIONS (4)
  - FALL [None]
  - ARTHRALGIA [None]
  - FEMUR FRACTURE [None]
  - WEIGHT BEARING DIFFICULTY [None]
